FAERS Safety Report 21952582 (Version 1)
Quarter: 2023Q1

REPORT INFORMATION
  Report Type: Report from Study
  Country: US (occurrence: US)
  Receive Date: 20230203
  Receipt Date: 20230203
  Transmission Date: 20230418
  Serious: Yes (Hospitalization)
  Sender: FDA-Public Use
  Company Number: US-EXELIXIS-CABO-21047001

PATIENT
  Age: 55 Year
  Sex: Male

DRUGS (13)
  1. CABOMETYX [Suspect]
     Active Substance: CABOZANTINIB S-MALATE
     Indication: Renal cancer
     Dosage: 60 MG, QD
     Route: 048
  2. KEPPRA [Concomitant]
     Active Substance: LEVETIRACETAM
  3. DECADRON [Concomitant]
     Active Substance: DEXAMETHASONE
  4. IRBESARTAN [Concomitant]
     Active Substance: IRBESARTAN
  5. METOPROLOL [Concomitant]
     Active Substance: METOPROLOL
  6. ATORVASTATIN [Concomitant]
     Active Substance: ATORVASTATIN
  7. BUPROPION [Concomitant]
     Active Substance: BUPROPION
  8. ESCITALOPRAM [Concomitant]
     Active Substance: ESCITALOPRAM OXALATE
  9. NORCO [Concomitant]
     Active Substance: ACETAMINOPHEN\HYDROCODONE BITARTRATE
  10. METFORMIN [Concomitant]
     Active Substance: METFORMIN HYDROCHLORIDE
  11. POTASSIUM CHLORIDE [Concomitant]
     Active Substance: POTASSIUM CHLORIDE
  12. OMEPRAZOLE [Concomitant]
     Active Substance: OMEPRAZOLE
  13. ZOFRAN [Concomitant]
     Active Substance: ONDANSETRON HYDROCHLORIDE

REACTIONS (1)
  - Seizure [Recovered/Resolved with Sequelae]

NARRATIVE: CASE EVENT DATE: 20210925
